FAERS Safety Report 9466616 (Version 2)
Quarter: 2013Q3

REPORT INFORMATION
  Report Type: Spontaneous
  Country: CN (occurrence: CN)
  Receive Date: 20130820
  Receipt Date: 20130828
  Transmission Date: 20140515
  Serious: Yes (Death, Other)
  Sender: FDA-Public Use
  Company Number: PHHY2013CN089073

PATIENT
  Age: 13 Year
  Sex: Male

DRUGS (11)
  1. CICLOSPORIN [Suspect]
     Indication: GRAFT VERSUS HOST DISEASE
  2. METHOTREXATE [Suspect]
     Indication: GRAFT VERSUS HOST DISEASE
  3. ACICLOVIR [Suspect]
     Indication: INFECTION PROPHYLAXIS
  4. GANCICLOVIR [Suspect]
     Indication: INFECTION PROPHYLAXIS
  5. ANTITHYMOCYTE IMMUNOGLOBULIN [Concomitant]
  6. CYCLOPHOSPHAMIDE [Concomitant]
     Dosage: 60 MG/KG, PER DAY
  7. ALPROSTADIL [Concomitant]
     Indication: VENOOCCLUSIVE LIVER DISEASE
  8. HEPARIN LMW [Concomitant]
     Indication: VENOOCCLUSIVE LIVER DISEASE
  9. SULFAMETHOXAZOLE [Concomitant]
     Indication: ANTIFUNGAL PROPHYLAXIS
  10. ITRACONAZOLE [Concomitant]
     Indication: ANTIFUNGAL PROPHYLAXIS
  11. ETOPOSIDE [Concomitant]
     Dosage: 15 MG/KG, PER DAY

REACTIONS (7)
  - Disseminated intravascular coagulation [Fatal]
  - Lung infection [Fatal]
  - Klebsiella sepsis [Fatal]
  - Cystitis haemorrhagic [Unknown]
  - Haematological malignancy [Unknown]
  - Neoplasm recurrence [Unknown]
  - BK virus infection [Unknown]
